FAERS Safety Report 16498261 (Version 2)
Quarter: 2021Q4

REPORT INFORMATION
  Report Type: Spontaneous
  Country: ES (occurrence: ES)
  Receive Date: 20190629
  Receipt Date: 20211012
  Transmission Date: 20220303
  Serious: Yes (Hospitalization, Other)
  Sender: FDA-Public Use
  Company Number: ES-AEMPS-504897

PATIENT
  Age: 88 Year
  Sex: Female

DRUGS (2)
  1. CITALOPRAM [Suspect]
     Active Substance: CITALOPRAM HYDROBROMIDE
     Indication: Product used for unknown indication
     Dosage: 30 MILLIGRAM, DAILY, 1.5-0-0
     Route: 048
     Dates: start: 20190108, end: 20190227
  2. Deprax [Concomitant]
     Indication: Product used for unknown indication
     Dosage: UNK,0-0-1
     Route: 048
     Dates: start: 20150101

REACTIONS (1)
  - Seizure [Recovered/Resolved]

NARRATIVE: CASE EVENT DATE: 20190216
